FAERS Safety Report 18340989 (Version 1)
Quarter: 2020Q4

REPORT INFORMATION
  Report Type: Spontaneous
  Country: RO (occurrence: RO)
  Receive Date: 20201003
  Receipt Date: 20201003
  Transmission Date: 20210113
  Serious: Yes (Other)
  Sender: FDA-Public Use
  Company Number: RO-QUAGEN-2020QUALIT00074

PATIENT
  Age: 35 Year
  Sex: Male

DRUGS (3)
  1. PREDNISOLONE ACETATE. [Interacting]
     Active Substance: PREDNISOLONE ACETATE
     Indication: NON-INFECTIOUS ENDOPHTHALMITIS
     Route: 065
  2. CYCLOPLEGIC [Interacting]
     Active Substance: CYCLOPENTOLATE HYDROCHLORIDE
     Indication: NON-INFECTIOUS ENDOPHTHALMITIS
     Route: 065
  3. TRIAMCINOLONE ACETONIDE. [Suspect]
     Active Substance: TRIAMCINOLONE ACETONIDE
     Indication: UVEITIS

REACTIONS (2)
  - Product use issue [Unknown]
  - Non-infectious endophthalmitis [Recovered/Resolved]
